FAERS Safety Report 4265938-7 (Version None)
Quarter: 2004Q1

REPORT INFORMATION
  Report Type: 
  Country: None (occurrence: None)
  Receive Date: 20040106
  Receipt Date: 20030922
  Transmission Date: 20041129
  Serious: Yes (Hospitalization, Other)
  Sender: FDA-Public Use
  Company Number: KII-2003-0006181

PATIENT
  Age: 49 Year
  Sex: Female

DRUGS (14)
  1. MORPHINE SULFATE [Suspect]
     Indication: DRUG USE FOR UNKNOWN INDICATION
  2. HYDROMORPHONE HCL [Suspect]
     Indication: DRUG USE FOR UNKNOWN INDICATION
  3. ACETAMINOPHEN AND HYDROCODONE BITARTRATE [Suspect]
     Indication: DRUG USE FOR UNKNOWN INDICATION
  4. ANTIMALARIAS [Suspect]
     Indication: DRUG USE FOR UNKNOWN INDICATION
  5. MUSCLE RELAXANTS [Suspect]
     Indication: DRUG USE FOR UNKNOWN INDICATION
  6. MUSCLE RELAXANTS [Suspect]
     Indication: DRUG USE FOR UNKNOWN INDICATION
  7. BENZODIAZEPINE DERIVATIVES [Suspect]
     Indication: DRUG USE FOR UNKNOWN INDICATION
  8. TRAZODONE HCL [Suspect]
     Indication: DRUG USE FOR UNKNOWN INDICATION
  9. ANTICONVULSANT [Suspect]
     Indication: DRUG USE FOR UNKNOWN INDICATION
  10. SSRI [Suspect]
     Indication: DRUG USE FOR UNKNOWN INDICATION
  11. COX-2 (INHIBITOR) [Suspect]
     Indication: DRUG USE FOR UNKNOWN INDICATION
  12. ESTROGENS CONJUGATED (ESTROGENS CONJUGATED) [Suspect]
     Indication: DRUG USE FOR UNKNOWN INDICATION
  13. THYROID TAB [Suspect]
     Indication: DRUG USE FOR UNKNOWN INDICATION
  14. METHOTREXATE [Suspect]
     Indication: DRUG USE FOR UNKNOWN INDICATION

REACTIONS (8)
  - BLOOD PRESSURE IMMEASURABLE [None]
  - COMA [None]
  - INTENTIONAL OVERDOSE [None]
  - MULTIPLE DRUG OVERDOSE [None]
  - PUPIL FIXED [None]
  - PUPILLARY REFLEX IMPAIRED [None]
  - RESPIRATORY ARREST [None]
  - SUICIDAL IDEATION [None]
